FAERS Safety Report 8739082 (Version 2)
Quarter: 2012Q4

REPORT INFORMATION
  Report Type: 
  Country: US (occurrence: US)
  Receive Date: 20120823
  Receipt Date: 20120910
  Transmission Date: 20130627
  Serious: No
  Sender: FDA-Public Use
  Company Number: US-009507513-1208USA000026

PATIENT

DRUGS (5)
  1. NEXPLANON [Suspect]
     Indication: CONTRACEPTION
     Dosage: UNK
     Route: 058
     Dates: start: 20120713
  2. NEURONTIN [Concomitant]
  3. LAMICTAL [Concomitant]
  4. ALBUTEROL [Concomitant]
  5. VITAMINS (UNSPECIFIED) [Concomitant]

REACTIONS (3)
  - Accident at home [Not Recovered/Not Resolved]
  - Contusion [Not Recovered/Not Resolved]
  - Discomfort [Unknown]
